FAERS Safety Report 9023929 (Version 3)
Quarter: 2013Q2

REPORT INFORMATION
  Report Type: Spontaneous
  Country: US (occurrence: US)
  Receive Date: 20130121
  Receipt Date: 20130509
  Transmission Date: 20140414
  Serious: Yes (Other)
  Sender: FDA-Public Use
  Company Number: US-PFIZER INC-2013022098

PATIENT
  Sex: Female

DRUGS (1)
  1. CELEBREX [Suspect]
     Indication: ARTHRITIS
     Dosage: 300 MG, 2X/DAY

REACTIONS (7)
  - Haemorrhage [Unknown]
  - Gastric disorder [Unknown]
  - Activities of daily living impaired [Unknown]
  - Arthritis [Unknown]
  - Anaemia [Unknown]
  - Iron deficiency [Unknown]
  - Pain [Unknown]
